FAERS Safety Report 5343447-1 (Version None)
Quarter: 2007Q2

REPORT INFORMATION
  Report Type: 
  Country: None (occurrence: None)
  Receive Date: 20070531
  Receipt Date: 20061026
  Transmission Date: 20071010
  Serious: Yes (Other)
  Sender: FDA-Public Use
  Company Number: 2006VX002117

PATIENT
  Age: 51 Year
  Sex: Female

DRUGS (2)
  1. FLURAZEPAM HCL [Suspect]
     Dosage: 600 MG
  2. ALCOHOL (ETHANOL) [Suspect]

REACTIONS (5)
  - ALCOHOL USE [None]
  - DEHYDRATION [None]
  - MYDRIASIS [None]
  - SOPOR [None]
  - SUICIDE ATTEMPT [None]
